FAERS Safety Report 4606014-0 (Version None)
Quarter: 2005Q2

REPORT INFORMATION
  Report Type: 
  Country: None (occurrence: None)
  Receive Date: 20050303
  Receipt Date: 20041102
  Transmission Date: 20051028
  Serious: No
  Sender: FDA-Public Use
  Company Number: 200420934BWH

PATIENT
  Age: 55 Year
  Sex: Male
  Weight: 124.2856 kg

DRUGS (2)
  1. LEVITRA [Suspect]
     Indication: ERECTILE DYSFUNCTION
     Dosage: 10 MG, TOTAL DAILY, ORAL
     Route: 048
     Dates: start: 20040801
  2. VIAGRA [Concomitant]

REACTIONS (3)
  - FUNGAL INFECTION [None]
  - RASH PRURITIC [None]
  - URTICARIA [None]
